FAERS Safety Report 15081278 (Version 1)
Quarter: 2018Q3

REPORT INFORMATION
  Report Type: Spontaneous
  Country: ES (occurrence: ES)
  Receive Date: 20180628
  Receipt Date: 20180628
  Transmission Date: 20181010
  Serious: Yes (Hospitalization)
  Sender: FDA-Public Use
  Company Number: ES-ACCORD-068719

PATIENT
  Age: 68 Year
  Sex: Male
  Weight: 72 kg

DRUGS (8)
  1. BECLOMETASONE [Concomitant]
     Active Substance: BECLOMETHASONE DIPROPIONATE
     Dates: start: 20180112
  2. ZOLPIDEM [Concomitant]
     Active Substance: ZOLPIDEM\ZOLPIDEM TARTRATE
     Dates: start: 20180405
  3. INSULIN LISPRO/INSULIN LISPRO PROTAMINE SUSPE [Concomitant]
     Dates: start: 20180112
  4. TOPOTECAN [Suspect]
     Active Substance: TOPOTECAN HYDROCHLORIDE
     Indication: SMALL CELL LUNG CANCER
     Route: 041
     Dates: start: 20180409
  5. DUTASTERIDE. [Concomitant]
     Active Substance: DUTASTERIDE
     Dates: start: 20101224
  6. DEXAMETHASONE. [Concomitant]
     Active Substance: DEXAMETHASONE
     Dosage: ALSO RECEIVED FROM 09?APR?2018 TO 13?APR?2018
     Dates: start: 20180409, end: 20180413
  7. TAMSULOSIN/TAMSULOSIN HYDROCHLORIDE [Concomitant]
     Dates: start: 20101224
  8. GRANISETRON [Concomitant]
     Active Substance: GRANISETRON
     Dates: start: 20180409, end: 20180413

REACTIONS (1)
  - Hypokalaemia [Recovered/Resolved]

NARRATIVE: CASE EVENT DATE: 20180430
